FAERS Safety Report 7179937-9 (Version None)
Quarter: 2010Q4

REPORT INFORMATION
  Report Type: 
  Country: None (occurrence: None)
  Receive Date: 20101208
  Receipt Date: 20101124
  Transmission Date: 20110411
  Serious: Yes (Hospitalization, Other)
  Sender: FDA-Public Use
  Company Number: JPI-P-013106

PATIENT
  Age: 67 Year
  Sex: Male
  Weight: 90.7194 kg

DRUGS (7)
  1. XYREM [Suspect]
     Indication: SLEEP DISORDER
     Dosage: SEE IMAGE
     Route: 048
     Dates: start: 20101006, end: 20100101
  2. XYREM [Suspect]
     Indication: SLEEP DISORDER
     Dosage: SEE IMAGE
     Route: 048
     Dates: start: 20101123, end: 20101123
  3. XYREM [Suspect]
     Indication: SLEEP DISORDER
     Dosage: SEE IMAGE
     Route: 048
     Dates: start: 20050216
  4. XYREM [Suspect]
     Indication: SLEEP DISORDER
     Dosage: SEE IMAGE
     Route: 048
     Dates: start: 20100101
  5. TAMSULOSIN HYDROCHLORIDE [Concomitant]
  6. DULOXETIME HYDROCHLORIDE [Concomitant]
  7. UNSPECIFIED CONCOMITANT MEDICATION [Concomitant]

REACTIONS (8)
  - DISSOCIATIVE IDENTITY DISORDER [None]
  - DRUG DETOXIFICATION [None]
  - DYSPNOEA [None]
  - INCORRECT DOSE ADMINISTERED [None]
  - POOR QUALITY SLEEP [None]
  - REPETITIVE SPEECH [None]
  - RESTLESSNESS [None]
  - SOMNOLENCE [None]
